FAERS Safety Report 15641546 (Version 3)
Quarter: 2018Q4

REPORT INFORMATION
  Report Type: Spontaneous
  Country: US (occurrence: US)
  Receive Date: 20181120
  Receipt Date: 20181215
  Transmission Date: 20190205
  Serious: Yes (Other)
  Sender: FDA-Public Use
  Company Number: US-AUROBINDO-AUR-APL-2018-054645

PATIENT
  Age: 28 Year
  Sex: Male

DRUGS (2)
  1. METHADONE [Suspect]
     Active Substance: METHADONE HYDROCHLORIDE
     Indication: PRODUCT USED FOR UNKNOWN INDICATION
     Dosage: UNK
     Route: 065
  2. QUETIAPINE. [Suspect]
     Active Substance: QUETIAPINE
     Indication: PRODUCT USED FOR UNKNOWN INDICATION
     Dosage: UNK
     Route: 065

REACTIONS (8)
  - Brachial plexopathy [Unknown]
  - Mononeuropathy [Unknown]
  - Hypoaesthesia [Unknown]
  - Loss of consciousness [Recovered/Resolved]
  - Overdose [Unknown]
  - Muscular weakness [Unknown]
  - Hypoxia [Unknown]
  - Blood creatine phosphokinase increased [Unknown]
